FAERS Safety Report 9619566 (Version 2)
Quarter: 2013Q4

REPORT INFORMATION
  Report Type: Spontaneous
  Country: FR (occurrence: FR)
  Receive Date: 20131014
  Receipt Date: 20131016
  Transmission Date: 20140711
  Serious: Yes (Hospitalization)
  Sender: FDA-Public Use
  Company Number: FR-SA-2013SA099435

PATIENT
  Age: 19 Year
  Sex: Female

DRUGS (4)
  1. RENVELA [Suspect]
     Indication: PRODUCT USED FOR UNKNOWN INDICATION
     Route: 048
     Dates: start: 20130226, end: 201308
  2. MIMPARA [Suspect]
     Indication: HYPERPARATHYROIDISM SECONDARY
     Route: 048
     Dates: start: 20130226
  3. ORGARAN [Concomitant]
     Dates: start: 2013
  4. VITAMINS [Concomitant]
     Indication: FOLATE DEFICIENCY

REACTIONS (2)
  - Thrombocytopenia [Recovered/Resolved]
  - Eosinophilia [Unknown]
